FAERS Safety Report 13011464 (Version 1)
Quarter: 2016Q4

REPORT INFORMATION
  Report Type: Spontaneous
  Country: US (occurrence: US)
  Receive Date: 20161209
  Receipt Date: 20161209
  Transmission Date: 20170207
  Serious: No
  Sender: FDA-Public Use
  Company Number: US-PAR PHARMACEUTICAL, INC-2016SCPR015122

PATIENT

DRUGS (1)
  1. IMIPRAMINE HCL [Suspect]
     Active Substance: IMIPRAMINE HYDROCHLORIDE
     Dosage: UNK, SINGLE
     Route: 048
     Dates: start: 20160118

REACTIONS (2)
  - Intentional product misuse [Unknown]
  - Burning sensation mucosal [Recovered/Resolved]

NARRATIVE: CASE EVENT DATE: 20160118
